FAERS Safety Report 4274559-1 (Version None)
Quarter: 2004Q1

REPORT INFORMATION
  Report Type: 
  Country: None (occurrence: None)
  Receive Date: 20040115
  Receipt Date: 20031017
  Transmission Date: 20041129
  Serious: Yes (Hospitalization)
  Sender: FDA-Public Use
  Company Number: 2003-CN-00457CN (1)

PATIENT
  Age: 78 Year
  Sex: Male

DRUGS (6)
  1. AGGRENOX [Suspect]
     Dosage: PO
     Route: 048
     Dates: start: 20031005
  2. PANTOLOC (NR) [Concomitant]
  3. LIPITOR [Concomitant]
  4. INSULIN (INSULIN) (NR) [Concomitant]
  5. INHIBACE (NR) [Concomitant]
  6. ASA (ACETYLSALICYLIC ACID) (NR) [Concomitant]

REACTIONS (2)
  - CEREBROVASCULAR ACCIDENT [None]
  - FACIAL PALSY [None]
